FAERS Safety Report 5586479-0 (Version None)
Quarter: 2007Q4

REPORT INFORMATION
  Report Type: 
  Country: None (occurrence: None)
  Receive Date: 20071205
  Receipt Date: 20061023
  Transmission Date: 20080405
  Serious: Yes (Other)
  Sender: FDA-Public Use
  Company Number: HQWYE575225OCT06

PATIENT
  Age: 15 Year
  Sex: Female

DRUGS (1)
  1. EFFEXOR XR [Suspect]
     Indication: SUICIDAL IDEATION
     Dosage: 37.5 MG 1X PER 1 DAY, ORAL
     Route: 048

REACTIONS (2)
  - DYSPNOEA [None]
  - PALPITATIONS [None]
